FAERS Safety Report 9066547 (Version 1)
Quarter: 2013Q1

REPORT INFORMATION
  Report Type: Report from Study
  Country: US (occurrence: US)
  Receive Date: 20130131
  Receipt Date: 20130131
  Transmission Date: 20140127
  Serious: No
  Sender: FDA-Public Use
  Company Number: US-ABBOTT-12P-163-1009023-00

PATIENT
  Sex: Male

DRUGS (2)
  1. HUMIRA [Suspect]
     Indication: RHEUMATOID ARTHRITIS
     Route: 058
     Dates: start: 2009, end: 2009
  2. HUMIRA [Suspect]
     Route: 058
     Dates: start: 2009

REACTIONS (2)
  - Joint stiffness [Not Recovered/Not Resolved]
  - Drug ineffective [Recovered/Resolved]
